FAERS Safety Report 5837707-5 (Version None)
Quarter: 2008Q3

REPORT INFORMATION
  Report Type: 
  Country: None (occurrence: None)
  Receive Date: 20080807
  Receipt Date: 20080724
  Transmission Date: 20090109
  Serious: Yes (Life-Threatening, Disabling, Other)
  Sender: FDA-Public Use
  Company Number: BE-MERCK-0806BEL00011

PATIENT
  Age: 49 Year
  Sex: Female
  Weight: 80 kg

DRUGS (3)
  1. SINGULAIR [Suspect]
     Indication: ASTHMA
     Route: 048
     Dates: start: 20070901, end: 20070926
  2. ANTIMICROBIAL (UNSPECIFIED) [Concomitant]
     Route: 065
  3. DEXAMETHASONE [Concomitant]
     Route: 048
     Dates: start: 20070901

REACTIONS (2)
  - ALLERGIC GRANULOMATOUS ANGIITIS [None]
  - HAEMORRHAGIC INFARCTION [None]
